FAERS Safety Report 24683624 (Version 1)
Quarter: 2024Q4

REPORT INFORMATION
  Report Type: Spontaneous
  Country: DE (occurrence: DE)
  Receive Date: 20241202
  Receipt Date: 20241202
  Transmission Date: 20250114
  Serious: Yes (Other)
  Sender: STRIDES
  Company Number: DE-STRIDES ARCOLAB LIMITED-2024SP015718

PATIENT
  Age: 21 Year
  Sex: Female

DRUGS (11)
  1. VANCOMYCIN [Suspect]
     Active Substance: VANCOMYCIN
     Indication: Mycoplasma infection
     Dosage: UNK
     Route: 065
  2. MEROPENEM [Suspect]
     Active Substance: MEROPENEM
     Indication: Mycoplasma infection
     Dosage: UNK
     Route: 065
  3. DOXYCYCLINE [Suspect]
     Active Substance: DOXYCYCLINE
     Indication: Mycoplasma infection
     Dosage: UNK (SHORT COURSES)
     Route: 065
  4. DOXYCYCLINE [Suspect]
     Active Substance: DOXYCYCLINE
     Dosage: UNK (FOR 151 DAYS)
     Route: 065
  5. DOXYCYCLINE [Suspect]
     Active Substance: DOXYCYCLINE
     Dosage: 400 MILLIGRAM, QD
     Route: 065
  6. DOXYCYCLINE [Suspect]
     Active Substance: DOXYCYCLINE
     Dosage: 200 MILLIGRAM, QD
     Route: 065
  7. CEFTRIAXONE [Suspect]
     Active Substance: CEFTRIAXONE
     Indication: Mycoplasma infection
     Dosage: UNK
     Route: 065
  8. PIPERACILLIN SODIUM\TAZOBACTAM SODIUM [Suspect]
     Active Substance: PIPERACILLIN SODIUM\TAZOBACTAM SODIUM
     Indication: Mycoplasma infection
     Dosage: UNK
     Route: 065
  9. LINEZOLID [Suspect]
     Active Substance: LINEZOLID
     Indication: Mycoplasma infection
     Dosage: UNK
     Route: 065
  10. CLARITHROMYCIN [Suspect]
     Active Substance: CLARITHROMYCIN
     Indication: Mycoplasma infection
     Dosage: UNK (SHORT COURSES)
     Route: 065
  11. FOSFOMYCIN [Suspect]
     Active Substance: FOSFOMYCIN
     Indication: Mycoplasma infection
     Dosage: UNK (SHORT COURSES)
     Route: 065

REACTIONS (3)
  - Condition aggravated [Recovered/Resolved]
  - Drug ineffective [Unknown]
  - Off label use [Unknown]
